FAERS Safety Report 8462413-0 (Version None)
Quarter: 2012Q2

REPORT INFORMATION
  Report Type: 
  Country: None (occurrence: None)
  Receive Date: 20120625
  Receipt Date: 20120618
  Transmission Date: 20120825
  Serious: Yes (Hospitalization)
  Sender: FDA-Public Use
  Company Number: FR-JNJFOC-20120610888

PATIENT
  Age: 40 Year
  Sex: Female

DRUGS (2)
  1. PREZISTA [Suspect]
     Indication: HIV INFECTION
     Dosage: 600MG+300MG TWICE A DAY
     Route: 065
     Dates: start: 20120608
  2. NORVIR [Concomitant]
     Indication: HIV INFECTION
     Route: 065
     Dates: start: 20120608

REACTIONS (1)
  - ATRIOVENTRICULAR BLOCK [None]
